FAERS Safety Report 9236773 (Version 2)
Quarter: 2013Q2

REPORT INFORMATION
  Report Type: Spontaneous
  Country: IT (occurrence: IT)
  Receive Date: 20130416
  Receipt Date: 20130424
  Transmission Date: 20140414
  Serious: Yes (Death)
  Sender: FDA-Public Use
  Company Number: IT-BRACCO-002462

PATIENT
  Age: 51 Year
  Sex: Female

DRUGS (1)
  1. MULTIHANCE [Suspect]
     Indication: NUCLEAR MAGNETIC RESONANCE IMAGING
     Route: 042
     Dates: start: 20130410, end: 20130410

REACTIONS (3)
  - Cardio-respiratory arrest [Fatal]
  - Malaise [Unknown]
  - Nausea [Unknown]
